FAERS Safety Report 11071336 (Version 1)
Quarter: 2015Q2

REPORT INFORMATION
  Report Type: Spontaneous
  Country: US (occurrence: None)
  Receive Date: 20150427
  Receipt Date: 20150427
  Transmission Date: 20150821
  Serious: Yes (Hospitalization)
  Sender: FDA-Public Use
  Company Number: None

PATIENT
  Age: 60 Year
  Sex: Male
  Weight: 78.84 kg

DRUGS (34)
  1. SPIRONOLACTONS [Concomitant]
  2. SOFOSBUVIR 400MG [Suspect]
     Active Substance: SOFOSBUVIR
     Route: 048
  3. CITRIC ACID [Concomitant]
     Active Substance: CITRIC ACID MONOHYDRATE
  4. TAMSULOSIN [Concomitant]
     Active Substance: TAMSULOSIN
  5. RIBIVIRAN 400MG [Suspect]
     Active Substance: RIBAVIRIN
     Indication: HEPATITIS C
     Route: 048
     Dates: start: 20140918, end: 20150309
  6. PRISTIQ EXTENDED RELEASE [Concomitant]
     Active Substance: DESVENLAFAXINE SUCCINATE
  7. SEROKOT [Concomitant]
  8. LISINOPRIL. [Concomitant]
     Active Substance: LISINOPRIL
  9. ORAZINE [Concomitant]
  10. ACETAMINOPHEN. [Concomitant]
     Active Substance: ACETAMINOPHEN
  11. ASPIRIN. [Concomitant]
     Active Substance: ASPIRIN
  12. EPOETIN ALFA [Concomitant]
     Active Substance: ERYTHROPOIETIN
  13. LACTOBACILLUS [Concomitant]
     Active Substance: LACTOBACILLUS ACIDOPHILUS
  14. AMLOPIPINE [Concomitant]
  15. ARGOCALCIFEROL [Concomitant]
  16. PANTOPRAZOLE [Concomitant]
     Active Substance: PANTOPRAZOLE SODIUM
  17. POLYETHYLENE GLYCOL [Concomitant]
     Active Substance: POLYETHYLENE GLYCOLS
  18. QUETIAPINE [Concomitant]
     Active Substance: QUETIAPINE
  19. CARVEDILOL. [Concomitant]
     Active Substance: CARVEDILOL
  20. CEPHALEXIN. [Concomitant]
     Active Substance: CEPHALEXIN
  21. FERROUS SULFATE [Concomitant]
     Active Substance: FERROUS SULFATE\FERROUS SULFATE, DRIED
  22. HYDROMORPHONE [Concomitant]
     Active Substance: HYDROMORPHONE
  23. NYSTATIN. [Concomitant]
     Active Substance: NYSTATIN
  24. TACROLIMISMNORCO [Concomitant]
  25. ASCORBIC ACID. [Concomitant]
     Active Substance: ASCORBIC ACID
  26. ACIDOPHILUS [Concomitant]
     Active Substance: LACTOBACILLUS ACIDOPHILUS
  27. MULTIVITAMIN [Concomitant]
     Active Substance: VITAMINS
  28. ATORVASTATIN [Concomitant]
     Active Substance: ATORVASTATIN
  29. BUMETANIDE. [Concomitant]
     Active Substance: BUMETANIDE
  30. FINASTERIDE. [Concomitant]
     Active Substance: FINASTERIDE
  31. IPRATROPIUM [Concomitant]
     Active Substance: IPRATROPIUM
  32. TRAMADOL [Concomitant]
     Active Substance: TRAMADOL
  33. WARAFIN [Concomitant]
     Active Substance: WARFARIN
  34. INSULIN [Concomitant]
     Active Substance: INSULIN NOS

REACTIONS (1)
  - Osteomyelitis acute [None]

NARRATIVE: CASE EVENT DATE: 20150310
